FAERS Safety Report 4865780-X (Version None)
Quarter: 2005Q4

REPORT INFORMATION
  Report Type: 
  Country: None (occurrence: None)
  Receive Date: 20051220
  Receipt Date: 20051209
  Transmission Date: 20060501
  Serious: Yes (Hospitalization)
  Sender: FDA-Public Use
  Company Number: 2005167403

PATIENT
  Age: 68 Year
  Sex: Female

DRUGS (2)
  1. SORTIS (ATORVASTATIN) [Suspect]
     Indication: ILL-DEFINED DISORDER
     Dosage: 5 MG (DAILY), ORAL
     Route: 048
     Dates: end: 20051209
  2. ALL OTHER THERAPEUTIC PRODUCTS (ALL OTHER THERAPEUTIC PRODUCTS) [Concomitant]

REACTIONS (6)
  - BLISTER [None]
  - BURNING SENSATION [None]
  - HERPES ZOSTER [None]
  - PRURITUS [None]
  - RASH MACULO-PAPULAR [None]
  - SKIN IRRITATION [None]
